FAERS Safety Report 20423662 (Version 1)
Quarter: 2022Q1

REPORT INFORMATION
  Report Type: Spontaneous
  Country: US (occurrence: US)
  Receive Date: 20220203
  Receipt Date: 20220203
  Transmission Date: 20220423
  Serious: No
  Sender: FDA-Public Use
  Company Number: US-THE RITEDOSE CORPORATION-2021RIT000138

PATIENT

DRUGS (1)
  1. ALBUTEROL SULFATE [Suspect]
     Active Substance: ALBUTEROL SULFATE
     Indication: Chronic obstructive pulmonary disease
     Dosage: 1 VIAL, QID
     Route: 055

REACTIONS (7)
  - Wheezing [Unknown]
  - Drug ineffective for unapproved indication [Unknown]
  - Off label use [Unknown]
  - Liquid product physical issue [Unknown]
  - Product quality issue [Unknown]
  - Product packaging difficult to open [Unknown]
  - Product label issue [Unknown]

NARRATIVE: CASE EVENT DATE: 20210504
